FAERS Safety Report 16959910 (Version 1)
Quarter: 2019Q4

REPORT INFORMATION
  Report Type: Report from Study
  Country: CA (occurrence: CA)
  Receive Date: 20191025
  Receipt Date: 20191025
  Transmission Date: 20200122
  Serious: Yes (Other)
  Sender: FDA-Public Use
  Company Number: CA-ORION CORPORATION ORION PHARMA-TREX2019-4635

PATIENT
  Age: 48 Year
  Sex: Male

DRUGS (11)
  1. COSENTYX [Suspect]
     Active Substance: SECUKINUMAB
     Route: 058
  2. METHOTREXATE (TRADE NAME UNKNOWN) [Suspect]
     Active Substance: METHOTREXATE
     Indication: PRODUCT USED FOR UNKNOWN INDICATION
     Route: 065
  3. HUMIRA [Concomitant]
     Active Substance: ADALIMUMAB
     Route: 065
  4. REMICADE [Concomitant]
     Active Substance: INFLIXIMAB
     Route: 065
  5. COSENTYX [Suspect]
     Active Substance: SECUKINUMAB
     Indication: PSORIATIC ARTHROPATHY
     Route: 058
  6. COSENTYX [Suspect]
     Active Substance: SECUKINUMAB
     Indication: PSORIASIS
     Route: 058
  7. COSENTYX [Suspect]
     Active Substance: SECUKINUMAB
     Route: 058
  8. ENBREL [Concomitant]
     Active Substance: ETANERCEPT
     Route: 065
  9. COSENTYX [Suspect]
     Active Substance: SECUKINUMAB
     Route: 058
  10. COSENTYX [Suspect]
     Active Substance: SECUKINUMAB
     Route: 058
  11. COSENTYX [Suspect]
     Active Substance: SECUKINUMAB
     Route: 058

REACTIONS (20)
  - Psoriasis [Not Recovered/Not Resolved]
  - Arthralgia [Not Recovered/Not Resolved]
  - Dry skin [Not Recovered/Not Resolved]
  - Psoriatic arthropathy [Not Recovered/Not Resolved]
  - Sleep disorder [Not Recovered/Not Resolved]
  - Joint swelling [Not Recovered/Not Resolved]
  - Liver injury [Not Recovered/Not Resolved]
  - Pain in extremity [Not Recovered/Not Resolved]
  - Rhinorrhoea [Not Recovered/Not Resolved]
  - Inappropriate schedule of product administration [Not Recovered/Not Resolved]
  - Pruritus [Not Recovered/Not Resolved]
  - Drug ineffective [Not Recovered/Not Resolved]
  - Nasopharyngitis [Not Recovered/Not Resolved]
  - Pain of skin [Not Recovered/Not Resolved]
  - Peripheral swelling [Not Recovered/Not Resolved]
  - Photophobia [Not Recovered/Not Resolved]
  - Skin exfoliation [Not Recovered/Not Resolved]
  - Skin fissures [Not Recovered/Not Resolved]
  - Gait disturbance [Not Recovered/Not Resolved]
  - Pain [Not Recovered/Not Resolved]
